FAERS Safety Report 23863620 (Version 1)
Quarter: 2024Q2

REPORT INFORMATION
  Report Type: Spontaneous
  Country: AU (occurrence: AU)
  Receive Date: 20240516
  Receipt Date: 20240516
  Transmission Date: 20240716
  Serious: Yes (Hospitalization, Disabling)
  Sender: FDA-Public Use
  Company Number: None

PATIENT
  Age: 42 Year
  Sex: Female
  Weight: 94.0 kg

DRUGS (7)
  1. CLINDAMYCIN [Suspect]
     Active Substance: CLINDAMYCIN
     Indication: Hidradenitis
  2. MINOCYCLINE [Suspect]
     Active Substance: MINOCYCLINE HYDROCHLORIDE
     Indication: Hidradenitis
  3. METHOTREXATE [Suspect]
     Active Substance: METHOTREXATE
     Indication: Hidradenitis
  4. ANAKINRA [Suspect]
     Active Substance: ANAKINRA
     Indication: Hidradenitis
     Dates: start: 2015
  5. DOXYCYCLINE HYCLATE [Suspect]
     Active Substance: DOXYCYCLINE HYCLATE
     Indication: Hidradenitis
  6. HUMIRA [Suspect]
     Active Substance: ADALIMUMAB
     Indication: Hidradenitis
     Dates: start: 2018
  7. INFLIXIMAB [Suspect]
     Active Substance: INFLIXIMAB
     Indication: Hidradenitis
     Dates: start: 2012, end: 2015

REACTIONS (7)
  - Hidradenitis [Unknown]
  - Condition aggravated [Unknown]
  - Depression [Unknown]
  - Feeling abnormal [Unknown]
  - Pain [Unknown]
  - Therapeutic product effect incomplete [Unknown]
  - Off label use [Unknown]
